FAERS Safety Report 9492180 (Version 1)
Quarter: 2013Q3

REPORT INFORMATION
  Report Type: Spontaneous
  Country: DE (occurrence: DE)
  Receive Date: 20130830
  Receipt Date: 20130830
  Transmission Date: 20140515
  Serious: Yes (Hospitalization)
  Sender: FDA-Public Use
  Company Number: DE-TEVA-428941GER

PATIENT
  Sex: 0

DRUGS (1)
  1. COPAXONE [Suspect]

REACTIONS (1)
  - Mental disorder [Recovering/Resolving]
